FAERS Safety Report 9540995 (Version 1)
Quarter: 2013Q3

REPORT INFORMATION
  Report Type: Spontaneous
  Country: None (occurrence: US)
  Receive Date: 20130922
  Receipt Date: 20130922
  Transmission Date: 20140515
  Serious: No
  Sender: FDA-Public Use
  Company Number: US-ALLERGAN-1212327US

PATIENT
  Sex: Male

DRUGS (3)
  1. SANCTURA XR [Suspect]
     Indication: PRODUCT USED FOR UNKNOWN INDICATION
     Dosage: UNK
     Route: 048
     Dates: start: 201206
  2. FLONASE [Concomitant]
     Indication: HYPERSENSITIVITY
  3. CLARITIN [Concomitant]
     Indication: SEASONAL ALLERGY

REACTIONS (1)
  - Vision blurred [Not Recovered/Not Resolved]
